FAERS Safety Report 8886750 (Version 1)
Quarter: 2012Q4

REPORT INFORMATION
  Report Type: 
  Country: US (occurrence: US)
  Receive Date: 20121105
  Receipt Date: 20121105
  Transmission Date: 20130627
  Serious: No
  Sender: FDA-Public Use
  Company Number: US-VERTEX PHARMACEUTICAL INC.-2012-024000

PATIENT
  Sex: Female
  Weight: 91 kg

DRUGS (5)
  1. FLEXERIL                           /00428402/ [Concomitant]
     Dosage: 1 DF, prn
     Route: 048
  2. VX-950 [Suspect]
     Indication: HEPATITIS C
     Dosage: 750 mg, tid
     Route: 048
     Dates: start: 20121014
  3. PEGINTRON                          /01543001/ [Concomitant]
     Indication: HEPATITIS C
     Dosage: 120 ?g, UNK
     Route: 058
     Dates: start: 20121014
  4. RIBASPHERE [Concomitant]
     Indication: HEPATITIS C
     Dosage: 600 mg, bid
     Route: 048
     Dates: start: 20121014
  5. VITAMIN D /00107901/ [Concomitant]
     Dosage: 1 DF, qd
     Route: 048

REACTIONS (4)
  - Fatigue [Unknown]
  - Rash erythematous [Unknown]
  - Dysgeusia [Unknown]
  - Decreased appetite [Unknown]
